FAERS Safety Report 17711344 (Version 1)
Quarter: 2020Q2

REPORT INFORMATION
  Report Type: Spontaneous
  Country: PT (occurrence: RU)
  Receive Date: 20200427
  Receipt Date: 20200427
  Transmission Date: 20200714
  Serious: Yes (Other)
  Sender: FDA-Public Use
  Company Number: PT-SUNOVION-2020SUN001222

PATIENT
  Age: 34 Year
  Sex: Female
  Weight: 48 kg

DRUGS (2)
  1. ZEBINIX [Suspect]
     Active Substance: ESLICARBAZEPINE ACETATE
     Indication: EPILEPSY
     Dosage: 400 MILLIGRAM, DAILY
     Route: 048
     Dates: start: 20150216, end: 20151226
  2. PERAMPANEL [Concomitant]
     Active Substance: PERAMPANEL
     Dosage: 8 MILLIGRAM, DAILY

REACTIONS (5)
  - Drug ineffective [Recovering/Resolving]
  - Tinnitus [Recovering/Resolving]
  - Memory impairment [Recovering/Resolving]
  - Seizure [Recovering/Resolving]
  - Dystonia [Recovering/Resolving]

NARRATIVE: CASE EVENT DATE: 20151115
